FAERS Safety Report 5342233-6 (Version None)
Quarter: 2007Q2

REPORT INFORMATION
  Report Type: 
  Country: None (occurrence: None)
  Receive Date: 20070419
  Receipt Date: 20070202
  Transmission Date: 20071010
  Serious: No
  Sender: FDA-Public Use
  Company Number: IPX00022

PATIENT
  Age: 15 Year
  Sex: Male
  Weight: 40 kg

DRUGS (1)
  1. IPLEX [Suspect]
     Dosage: 0.5 MG/KG/DAILY/SC
     Route: 058
     Dates: start: 20070113

REACTIONS (2)
  - HEADACHE [None]
  - STOMACH DISCOMFORT [None]
